FAERS Safety Report 9490340 (Version 1)
Quarter: 2013Q3

REPORT INFORMATION
  Report Type: Spontaneous
  Country: DE (occurrence: DE)
  Receive Date: 20130830
  Receipt Date: 20130830
  Transmission Date: 20140515
  Serious: Yes (Other)
  Sender: FDA-Public Use
  Company Number: DE-ROCHE-1268269

PATIENT
  Age: 55 Year
  Sex: Female

DRUGS (1)
  1. RIVOTRIL [Suspect]
     Indication: EPILEPSY
     Route: 048

REACTIONS (2)
  - Drug ineffective [Unknown]
  - Convulsion [Unknown]
